FAERS Safety Report 5624287-2 (Version None)
Quarter: 2008Q1

REPORT INFORMATION
  Report Type: 
  Country: None (occurrence: None)
  Receive Date: 20080208
  Receipt Date: 20080208
  Transmission Date: 20080703
  Serious: Yes (Hospitalization)
  Sender: FDA-Public Use
  Company Number: None

PATIENT
  Age: 79 Year
  Sex: Female
  Weight: 45.4 kg

DRUGS (9)
  1. TARCEVA [Suspect]
     Indication: NON-SMALL CELL LUNG CANCER
     Dosage: 150MG PO DAILY
     Route: 048
     Dates: start: 20071025, end: 20071206
  2. BEVACIZUMAB- 15MG/KG IV Q3 WEEKS [Suspect]
     Indication: NON-SMALL CELL LUNG CANCER
     Dosage: 15MG/KG IV Q3 WEEKS
     Route: 042
     Dates: start: 20071025, end: 20071115
  3. CEFTRIAXONE [Concomitant]
  4. HEPARIN [Concomitant]
  5. LEVOTHYROXINE SODIUM [Concomitant]
  6. PREDNISONE TAB [Concomitant]
  7. ATENOLOL [Concomitant]
  8. FENTANYL [Concomitant]
  9. PERCOCET [Concomitant]

REACTIONS (5)
  - DISEASE PROGRESSION [None]
  - GASTROINTESTINAL INFECTION [None]
  - LARGE INTESTINE PERFORATION [None]
  - PERITONITIS [None]
  - PURULENCE [None]
